FAERS Safety Report 6876387-7 (Version None)
Quarter: 2010Q3

REPORT INFORMATION
  Report Type: 
  Country: None (occurrence: None)
  Receive Date: 20100727
  Receipt Date: 20070702
  Transmission Date: 20110219
  Serious: Yes (Hospitalization, Other)
  Sender: FDA-Public Use
  Company Number: US-PFIZER INC-2007010075

PATIENT
  Sex: Female

DRUGS (4)
  1. CELEBREX [Suspect]
     Indication: OSTEOARTHRITIS
     Dates: start: 20010817, end: 20011026
  2. BEXTRA [Suspect]
     Indication: OSTEOARTHRITIS
     Dates: start: 20021007
  3. VIOXX [Suspect]
     Indication: OSTEOARTHRITIS
     Dates: start: 20011028, end: 20020918
  4. HYDROXYCHLOROQUINE [Concomitant]
     Dates: start: 20030901, end: 20041201

REACTIONS (3)
  - CONTUSION [None]
  - EXCORIATION [None]
  - MYOCARDIAL INFARCTION [None]
